FAERS Safety Report 17129284 (Version 1)
Quarter: 2019Q4

REPORT INFORMATION
  Report Type: Spontaneous
  Country: US (occurrence: US)
  Receive Date: 20191115
  Receipt Date: 20191115
  Transmission Date: 20200122
  Serious: Yes (Hospitalization)
  Sender: FDA-Public Use
  Company Number: None

PATIENT
  Age: 80 Year
  Sex: Female

DRUGS (2)
  1. FASLODEX [Concomitant]
     Active Substance: FULVESTRANT
  2. PIQRAY [Suspect]
     Active Substance: ALPELISIB
     Indication: BREAST CANCER
     Route: 048
     Dates: start: 201909

REACTIONS (2)
  - Therapy cessation [None]
  - Fall [None]

NARRATIVE: CASE EVENT DATE: 20191115
